FAERS Safety Report 12518718 (Version 3)
Quarter: 2016Q3

REPORT INFORMATION
  Report Type: Spontaneous
  Country: US (occurrence: US)
  Receive Date: 20160630
  Receipt Date: 20160914
  Transmission Date: 20161109
  Serious: Yes (Hospitalization)
  Sender: FDA-Public Use
  Company Number: US-DSJP-DSU-2009-00162-1

PATIENT

DRUGS (5)
  1. HYDROCHLOROTHIAZIDE. [Suspect]
     Active Substance: HYDROCHLOROTHIAZIDE
     Indication: PRODUCT USED FOR UNKNOWN INDICATION
     Dosage: UNK
  2. BENICAR [Suspect]
     Active Substance: OLMESARTAN MEDOXOMIL
     Indication: HYPERTENSION
     Dosage: 40 MG, UNK
     Route: 048
     Dates: start: 2003, end: 2005
  3. BENICAR HCT [Suspect]
     Active Substance: HYDROCHLOROTHIAZIDE\OLMESARTAN MEDOXOMIL
     Dosage: UNK
     Route: 048
  4. BENICAR HCT [Suspect]
     Active Substance: HYDROCHLOROTHIAZIDE\OLMESARTAN MEDOXOMIL
     Indication: HYPERTENSION
     Dosage: 40/12.5 MG, QD
     Dates: start: 2003, end: 2005
  5. BENICAR [Suspect]
     Active Substance: OLMESARTAN MEDOXOMIL
     Dosage: 20 MG, QD

REACTIONS (13)
  - Hyperhidrosis [Recovered/Resolved]
  - Acute kidney injury [Recovered/Resolved]
  - Renal cyst [Unknown]
  - Retching [Recovered/Resolved]
  - Hypotension [Recovered/Resolved]
  - Occult blood positive [Recovered/Resolved]
  - Gastric ulcer [Unknown]
  - Pain [Recovered/Resolved]
  - Coeliac disease [Not Recovered/Not Resolved]
  - Malabsorption [Recovered/Resolved]
  - Inguinal hernia [Unknown]
  - Large intestine polyp [Unknown]
  - Hepatic enzyme increased [Unknown]

NARRATIVE: CASE EVENT DATE: 2005
